FAERS Safety Report 5864106-2 (Version None)
Quarter: 2008Q3

REPORT INFORMATION
  Report Type: 
  Country: None (occurrence: None)
  Receive Date: 20080829
  Receipt Date: 20080819
  Transmission Date: 20090109
  Serious: Yes (Hospitalization, Other)
  Sender: FDA-Public Use
  Company Number: US-ROCHE-563594

PATIENT
  Sex: Female
  Weight: 67.3 kg

DRUGS (4)
  1. BONIVA [Suspect]
     Indication: OSTEOPOROSIS
     Route: 048
     Dates: start: 20060708, end: 20060708
  2. ZESTRIL [Concomitant]
     Indication: HYPERTENSION
     Route: 048
  3. 1 CONCOMITANT DRUG [Concomitant]
     Indication: HYPERTENSION
     Dosage: DRUG: WATER PILL
  4. QUININE [Concomitant]
     Dosage: AT BEDTIME AS NEEDED

REACTIONS (11)
  - CARPAL TUNNEL SYNDROME [None]
  - CONFUSIONAL STATE [None]
  - DEHYDRATION [None]
  - DIARRHOEA [None]
  - HYPOKALAEMIA [None]
  - HYPOPHAGIA [None]
  - HYPOTENSION [None]
  - MYALGIA [None]
  - RENAL FAILURE ACUTE [None]
  - RHABDOMYOLYSIS [None]
  - URINARY TRACT INFECTION [None]
